FAERS Safety Report 5271367-X (Version None)
Quarter: 2007Q1

REPORT INFORMATION
  Report Type: 
  Country: None (occurrence: None)
  Receive Date: 20070315
  Receipt Date: 20070302
  Transmission Date: 20070707
  Serious: Yes (Death)
  Sender: FDA-Public Use
  Company Number: 2007SP003941

PATIENT
  Age: 74 Year
  Sex: Female
  Weight: 43 kg

DRUGS (7)
  1. TEMODAL [Suspect]
     Indication: ANAPLASTIC ASTROCYTOMA
     Dosage: 75 MG/M2;QD;PO
     Route: 048
     Dates: start: 20070129, end: 20070209
  2. RADIOTHERAPY [Concomitant]
  3. GLYCEOL [Concomitant]
  4. KYTRIL [Concomitant]
  5. EXCEGRAN [Concomitant]
  6. GASTER [Concomitant]
  7. PREDONINE [Concomitant]

REACTIONS (2)
  - CARDIAC FAILURE ACUTE [None]
  - LOCAL REACTION [None]
